FAERS Safety Report 14738969 (Version 2)
Quarter: 2018Q2

REPORT INFORMATION
  Report Type: Report from Study
  Country: None (occurrence: US)
  Receive Date: 20180410
  Receipt Date: 20180418
  Transmission Date: 20180711
  Serious: Yes (Hospitalization, Other)
  Sender: FDA-Public Use
  Company Number: US-ABBVIE-18K-163-2315692-00

PATIENT
  Age: 45 Year
  Sex: Male
  Weight: 80.81 kg

DRUGS (3)
  1. HUMIRA [Suspect]
     Active Substance: ADALIMUMAB
     Indication: CROHN^S DISEASE
     Route: 058
     Dates: start: 201511, end: 201710
  2. AMBIEN [Concomitant]
     Active Substance: ZOLPIDEM TARTRATE
     Indication: SLEEP DISORDER THERAPY
  3. STELARA [Suspect]
     Active Substance: USTEKINUMAB
     Indication: CROHN^S DISEASE
     Route: 065
     Dates: start: 20180330

REACTIONS (22)
  - Extrasystoles [Not Recovered/Not Resolved]
  - Cardiac failure [Not Recovered/Not Resolved]
  - Weight decreased [Recovered/Resolved]
  - Asthenia [Recovering/Resolving]
  - Blood creatinine increased [Recovering/Resolving]
  - Ventricular extrasystoles [Not Recovered/Not Resolved]
  - Cardiac flutter [Recovering/Resolving]
  - Ejection fraction decreased [Not Recovered/Not Resolved]
  - Diarrhoea [Recovering/Resolving]
  - Somnolence [Unknown]
  - Fatigue [Recovering/Resolving]
  - Renal failure [Recovering/Resolving]
  - Dyspnoea [Recovered/Resolved]
  - Gastrointestinal inflammation [Recovered/Resolved]
  - Weight increased [Recovering/Resolving]
  - Therapeutic response shortened [Not Recovered/Not Resolved]
  - Respiratory failure [Recovered/Resolved]
  - Decreased appetite [Recovered/Resolved]
  - Hypotension [Not Recovered/Not Resolved]
  - Headache [Unknown]
  - Histoplasmosis [Recovered/Resolved]
  - Dyspnoea [Recovered/Resolved]

NARRATIVE: CASE EVENT DATE: 201702
